FAERS Safety Report 19682812 (Version 1)
Quarter: 2021Q3

REPORT INFORMATION
  Report Type: Spontaneous
  Country: IN (occurrence: IN)
  Receive Date: 20210811
  Receipt Date: 20210811
  Transmission Date: 20211014
  Serious: Yes (Death, Hospitalization)
  Sender: FDA-Public Use
  Company Number: IN-LUPIN LIMITED-2021-14181

PATIENT
  Age: 8 Year
  Sex: Male

DRUGS (7)
  1. PHENYTOIN SODIUM. [Suspect]
     Active Substance: PHENYTOIN SODIUM
     Indication: SUBACUTE SCLEROSING PANENCEPHALITIS
     Dosage: UNK
     Route: 065
  2. MIDAZOLAM. [Suspect]
     Active Substance: MIDAZOLAM
     Indication: SUBACUTE SCLEROSING PANENCEPHALITIS
     Dosage: UNK
     Route: 065
  3. LEVETIRACETAM. [Suspect]
     Active Substance: LEVETIRACETAM
     Indication: SUBACUTE SCLEROSING PANENCEPHALITIS
     Dosage: UNK
     Route: 065
  4. PHENOBARBITONE [Suspect]
     Active Substance: PHENOBARBITAL
     Indication: SUBACUTE SCLEROSING PANENCEPHALITIS
     Dosage: UNK
     Route: 065
  5. MANNITOL. [Suspect]
     Active Substance: MANNITOL
     Indication: SUBACUTE SCLEROSING PANENCEPHALITIS
     Dosage: UNK
     Route: 065
  6. ISOPRINOSINE [Suspect]
     Active Substance: INOSINE PRANOBEX
     Indication: SUBACUTE SCLEROSING PANENCEPHALITIS
     Dosage: UNK
     Route: 065
  7. METHYLPREDNISOLONE. [Suspect]
     Active Substance: METHYLPREDNISOLONE
     Indication: SUBACUTE SCLEROSING PANENCEPHALITIS
     Dosage: 30 MILLIGRAM/KILOGRAM, QD
     Route: 065

REACTIONS (2)
  - Drug ineffective for unapproved indication [Fatal]
  - Off label use [Unknown]
